FAERS Safety Report 5934209-2 (Version None)
Quarter: 2008Q4

REPORT INFORMATION
  Report Type: 
  Country: None (occurrence: None)
  Receive Date: 20081029
  Receipt Date: 20081021
  Transmission Date: 20090506
  Serious: Yes (Hospitalization, Other)
  Sender: FDA-Public Use
  Company Number: US-AMGEN-KDL300207

PATIENT
  Sex: Male
  Weight: 19.5 kg

DRUGS (22)
  1. EPOGEN [Suspect]
     Indication: DIALYSIS
     Route: 042
     Dates: start: 19940101
  2. CALCIUM CARBONATE [Concomitant]
  3. RENAGEL [Concomitant]
     Dates: start: 20080104
  4. KAYEXALATE [Concomitant]
     Dates: start: 20080528
  5. DIATX [Concomitant]
     Route: 048
     Dates: start: 20060203
  6. ZANTAC [Concomitant]
     Dates: start: 20030108
  7. COLACE [Concomitant]
     Dates: start: 20040715
  8. MIRALAX [Concomitant]
     Dates: start: 20050817
  9. BICITRA [Concomitant]
     Dates: start: 20061025
  10. TYLENOL [Concomitant]
     Dates: start: 20041015
  11. ALBUMIN (HUMAN) [Concomitant]
     Route: 042
     Dates: start: 20080104
  12. VENOFER [Concomitant]
     Route: 042
     Dates: start: 20080307
  13. CALCITRIOL [Concomitant]
     Route: 042
     Dates: start: 20080704
  14. FLOVENT [Concomitant]
     Dates: start: 20040428
  15. XOPENEX [Concomitant]
     Dates: start: 20000407
  16. ALBUTEROL [Concomitant]
     Route: 045
     Dates: start: 20040428
  17. BACTROBAN [Concomitant]
     Route: 061
     Dates: start: 20041006
  18. IBUPROFEN TABLETS [Concomitant]
     Dates: start: 20041015
  19. NALDECON [Concomitant]
     Route: 048
     Dates: start: 20001223
  20. GUAIFENESIN [Concomitant]
     Dates: start: 20040305
  21. BENADRYL [Concomitant]
     Dates: start: 20010629
  22. L-CARNITINE [Concomitant]
     Dates: start: 20080101

REACTIONS (9)
  - CEREBRAL INFARCTION [None]
  - CONVULSION [None]
  - ENCEPHALOMALACIA [None]
  - HYPERPARATHYROIDISM SECONDARY [None]
  - HYPERTENSION [None]
  - INFECTION [None]
  - RESPIRATORY DISTRESS [None]
  - THERAPEUTIC RESPONSE DECREASED [None]
  - TRANSPLANT REJECTION [None]
